FAERS Safety Report 8832197 (Version 1)
Quarter: 2012Q4

REPORT INFORMATION
  Report Type: 
  Country: US (occurrence: US)
  Receive Date: 20121009
  Receipt Date: 20121009
  Transmission Date: 20130627
  Serious: No
  Sender: FDA-Public Use
  Company Number: US-ASTRAZENECA-2012SE74497

PATIENT
  Age: 64 Year
  Sex: Female

DRUGS (3)
  1. NEXIUM [Suspect]
     Route: 048
  2. ZANTAC [Suspect]
     Route: 065
  3. MYLANTA PLUS [Suspect]
     Route: 065

REACTIONS (4)
  - Gastric disorder [Unknown]
  - Diarrhoea [Recovering/Resolving]
  - Headache [Unknown]
  - Malaise [Unknown]
